FAERS Safety Report 7563659-6 (Version None)
Quarter: 2011Q2

REPORT INFORMATION
  Report Type: 
  Country: None (occurrence: None)
  Receive Date: 20110621
  Receipt Date: 20110621
  Transmission Date: 20111010
  Serious: Yes (Disabling, Other)
  Sender: FDA-Public Use
  Company Number: None

PATIENT
  Sex: Female
  Weight: 48.9885 kg

DRUGS (2)
  1. LEVAQUIN [Suspect]
     Indication: SINUSITIS
     Dosage: 1 TABLET 1 TIME A DAY ORAL
     Route: 048
     Dates: start: 20110316
  2. LEVAQUIN [Suspect]
     Indication: SINUSITIS
     Dosage: 1 TABLET 1 TIME A DAY ORAL
     Route: 048
     Dates: start: 20110317

REACTIONS (5)
  - INJURY [None]
  - FEAR [None]
  - PAIN IN EXTREMITY [None]
  - ARTHRALGIA [None]
  - QUALITY OF LIFE DECREASED [None]
